FAERS Safety Report 9668362 (Version 3)
Quarter: 2013Q4

REPORT INFORMATION
  Report Type: Spontaneous
  Country: CA (occurrence: CA)
  Receive Date: 20131104
  Receipt Date: 20131108
  Transmission Date: 20140711
  Serious: Yes (Hospitalization, Other)
  Sender: FDA-Public Use
  Company Number: CA-PFIZER INC-2013306131

PATIENT
  Age: 77 Year
  Sex: Female
  Weight: 77.6 kg

DRUGS (14)
  1. LIPITOR [Suspect]
     Indication: HYPERLIPIDAEMIA
     Dosage: 80 MG, 1X/DAY
     Route: 048
     Dates: start: 20091001
  2. SYNTHROID [Concomitant]
     Indication: HYPOTHYROIDISM
     Dosage: 0.075 MG, 1X/DAY
     Route: 048
     Dates: start: 2007
  3. COZAAR [Concomitant]
     Indication: HYPERTENSION
     Dosage: 100 MG, 1X/DAY
     Route: 048
     Dates: start: 20071126
  4. ASPIRIN [Concomitant]
     Indication: CARDIOVASCULAR EVENT PROPHYLAXIS
     Dosage: 81 MG, 1X/DAY
     Route: 048
     Dates: start: 2001
  5. TYLENOL ARTHRITIS [Concomitant]
     Indication: ARTHRITIS
     Dosage: 500 MG, AS NEEDED
     Route: 048
     Dates: start: 2009
  6. DESYREL [Concomitant]
     Indication: ANXIETY
     Dosage: 15 MG, 1X/DAY (AT BEDTIME)
     Route: 048
     Dates: start: 2001
  7. VITAMIN B12 [Concomitant]
     Indication: VITAMIN B12 DEFICIENCY
     Dosage: 1 ML, EVERY 3 WEEKS
     Route: 030
     Dates: start: 1996
  8. DOVOBET [Concomitant]
     Indication: PSORIASIS
     Dosage: 0.5 MG, AS NEEDED
     Route: 061
     Dates: start: 2009
  9. NITROGLYCERIN [Concomitant]
     Indication: ANGINA PECTORIS
     Dosage: 0.4 MG, AS NEEDED
     Route: 055
     Dates: start: 2001
  10. LASIX [Concomitant]
     Indication: HYPERTENSION
     Dosage: 40 MG, 1X/DAY
     Route: 048
     Dates: start: 20080108
  11. NORVASC [Concomitant]
     Indication: HYPERTENSION
     Dosage: 5 MG, 1X/DAY
     Route: 048
     Dates: start: 20110623
  12. TRAZODONE [Concomitant]
     Indication: ANXIETY
     Dosage: 15 MG, 1X/DAY AT BEDTIME
     Route: 048
     Dates: start: 2011
  13. SOFLAX [Concomitant]
     Indication: CONSTIPATION
     Dosage: 100 MG, AS NEEDED
     Route: 048
     Dates: start: 2010
  14. MULTIVITAMINS [Concomitant]
     Indication: PROPHYLAXIS
     Dosage: 1 DF, 1X/DAY
     Route: 048
     Dates: start: 2010

REACTIONS (4)
  - Atrial fibrillation [Recovered/Resolved]
  - Coronary artery disease [Recovered/Resolved]
  - Palpitations [Recovered/Resolved]
  - Muscle spasms [Unknown]
